FAERS Safety Report 17062369 (Version 1)
Quarter: 2019Q4

REPORT INFORMATION
  Report Type: Spontaneous
  Country: US (occurrence: US)
  Receive Date: 20191122
  Receipt Date: 20191122
  Transmission Date: 20200122
  Serious: No
  Sender: FDA-Public Use
  Company Number: US-AMGEN-USASP2019191617

PATIENT
  Age: 59 Year
  Sex: Female

DRUGS (1)
  1. PROLIA [Suspect]
     Active Substance: DENOSUMAB
     Indication: OSTEOPOROSIS
     Dosage: UNK
     Route: 065
     Dates: start: 201905

REACTIONS (14)
  - Diarrhoea [Unknown]
  - Thermal burn [Unknown]
  - Migraine [Not Recovered/Not Resolved]
  - Decreased appetite [Unknown]
  - Pyrexia [Unknown]
  - Constipation [Unknown]
  - Blister [Unknown]
  - Rash pruritic [Unknown]
  - Insomnia [Unknown]
  - Night sweats [Unknown]
  - Candida infection [Unknown]
  - Dysphonia [Unknown]
  - Abdominal pain [Unknown]
  - Bone pain [Unknown]

NARRATIVE: CASE EVENT DATE: 201911
